FAERS Safety Report 7691760-5 (Version None)
Quarter: 2011Q3

REPORT INFORMATION
  Report Type: 
  Country: None (occurrence: None)
  Receive Date: 20110818
  Receipt Date: 20110808
  Transmission Date: 20111222
  Serious: Yes (Other)
  Sender: FDA-Public Use
  Company Number: FR-GLAXOSMITHKLINE-B0739982A

PATIENT
  Sex: Female
  Weight: 65 kg

DRUGS (21)
  1. ONDANSERTRON HYDROCHLORIDE [Concomitant]
     Route: 042
     Dates: start: 20110605, end: 20110615
  2. VALPROIC ACID [Concomitant]
     Route: 048
     Dates: start: 20110605, end: 20110610
  3. DEPAKENE [Concomitant]
     Route: 042
     Dates: start: 20110610, end: 20110628
  4. DEXANE [Concomitant]
  5. VANCOMYCIN [Concomitant]
     Route: 042
     Dates: start: 20110610, end: 20110629
  6. VALACYCLOVIR HYDROCHLORIDE [Concomitant]
     Route: 042
     Dates: start: 20110605
  7. ACETAMINOPHEN [Concomitant]
     Route: 048
     Dates: start: 20110607, end: 20110607
  8. IMODIUM [Concomitant]
     Route: 048
     Dates: start: 20110608, end: 20110613
  9. PIPERACILLIN AND TAZOBACTAM [Concomitant]
     Route: 042
     Dates: start: 20110612, end: 20110620
  10. AMIKACIN [Concomitant]
     Route: 042
     Dates: start: 20110612, end: 20110627
  11. TRAMADOL HCL [Concomitant]
     Route: 042
     Dates: start: 20110615, end: 20110617
  12. UNSPECIFIED MEDICATION [Concomitant]
     Route: 048
     Dates: start: 20110608, end: 20110611
  13. TOPOTECAN [Suspect]
     Indication: OVARIAN CANCER
     Dosage: 8.5MGM2 PER DAY
     Route: 042
     Dates: start: 20110606
  14. FLAGYL [Concomitant]
     Route: 042
     Dates: start: 20110610
  15. PANTOPRAZOLE SODIUM [Concomitant]
     Route: 042
     Dates: start: 20110605, end: 20110702
  16. CHLORPROMAZINE HCL [Concomitant]
     Route: 042
     Dates: start: 20110610, end: 20110614
  17. PLITICAN [Concomitant]
     Route: 042
     Dates: start: 20110610
  18. CARBOPLATIN [Suspect]
     Indication: OVARIAN CANCER
     Route: 042
     Dates: start: 20110606
  19. FLUCONAZOLE [Concomitant]
     Route: 042
     Dates: start: 20110605, end: 20110701
  20. TIORFAN [Concomitant]
     Route: 048
     Dates: start: 20110610, end: 20110617
  21. ROCEPHIN [Concomitant]
     Route: 048
     Dates: start: 20110610, end: 20110610

REACTIONS (1)
  - ISCHAEMIA [None]
